FAERS Safety Report 4704805-9 (Version None)
Quarter: 2005Q3

REPORT INFORMATION
  Report Type: 
  Country: None (occurrence: None)
  Receive Date: 20050701
  Receipt Date: 20050621
  Transmission Date: 20060218
  Serious: Yes (Hospitalization)
  Sender: FDA-Public Use
  Company Number: 2005UW09483

PATIENT
  Age: 46 Year
  Sex: Female
  Weight: 104.3 kg

DRUGS (2)
  1. CRESTOR [Suspect]
     Indication: BLOOD CHOLESTEROL INCREASED
     Route: 048
     Dates: start: 20050511
  2. ZYRTEC-D 12 HOUR [Concomitant]

REACTIONS (10)
  - ABASIA [None]
  - ANURIA [None]
  - ARTHRITIS [None]
  - CONSTIPATION [None]
  - HYPOAESTHESIA [None]
  - INFLAMMATION [None]
  - INFLUENZA LIKE ILLNESS [None]
  - MOVEMENT DISORDER [None]
  - NAUSEA [None]
  - WEIGHT INCREASED [None]
